FAERS Safety Report 18112805 (Version 1)
Quarter: 2020Q3

REPORT INFORMATION
  Report Type: Spontaneous
  Country: US (occurrence: US)
  Receive Date: 20200805
  Receipt Date: 20200805
  Transmission Date: 20201103
  Serious: Yes (Death)
  Sender: FDA-Public Use
  Company Number: None

PATIENT
  Age: 66 Year
  Sex: Male
  Weight: 98 kg

DRUGS (2)
  1. REMDESIVIR (EUA) (REMDESIVIR (EUA)) [Suspect]
     Active Substance: REMDESIVIR
     Indication: COVID-19
     Route: 042
     Dates: start: 20200605, end: 20200612
  2. CEFEPIME (CEFEPIME HCL 2GM/BAG INJ) [Suspect]
     Active Substance: CEFEPIME HYDROCHLORIDE
     Indication: SEPTIC SHOCK
     Route: 042
     Dates: start: 20200605, end: 20200612

REACTIONS (4)
  - Aspartate aminotransferase increased [None]
  - Unresponsive to stimuli [None]
  - Alanine aminotransferase increased [None]
  - Liver function test increased [None]

NARRATIVE: CASE EVENT DATE: 20200607
